FAERS Safety Report 12212735 (Version 1)
Quarter: 2016Q1

REPORT INFORMATION
  Report Type: Spontaneous
  Country: MX (occurrence: MX)
  Receive Date: 20160328
  Receipt Date: 20160328
  Transmission Date: 20160526
  Serious: Yes (Other)
  Sender: FDA-Public Use
  Company Number: MX-ROCHE-1729028

PATIENT
  Age: 81 Year
  Sex: Female

DRUGS (10)
  1. ROACTEMRA [Suspect]
     Active Substance: TOCILIZUMAB
     Indication: RHEUMATOID ARTHRITIS
     Dosage: ON SATURADAYS
     Route: 058
     Dates: start: 20160206
  2. REDOXON [Concomitant]
     Active Substance: ASCORBIC ACID
     Indication: NUTRITIONAL SUPPLEMENTATION
     Dosage: 1 TABLET AT NOON, IT IS ONGOING
     Route: 048
     Dates: start: 2012
  3. OMEGA 3 [Concomitant]
     Active Substance: OMEGA-3 FATTY ACIDS
     Indication: NUTRITIONAL SUPPLEMENTATION
     Dosage: 1 TABLET IN THE MORNIGNS, IT IS ONGOING.
     Route: 048
     Dates: start: 201507
  4. PRISTIQ EXTENDED RELEASE [Concomitant]
     Active Substance: DESVENLAFAXINE SUCCINATE
     Dosage: 1 TABLET IN THE MORNING, IT IS ONGOING
     Route: 048
     Dates: start: 2011
  5. FOLIC ACID. [Concomitant]
     Active Substance: FOLIC ACID
     Indication: NUTRITIONAL SUPPLEMENTATION
     Dosage: 1 TABLET, MORNINGS, IT IS ONGOING.
     Route: 048
     Dates: start: 2011
  6. SECOTEX [Concomitant]
     Active Substance: TAMSULOSIN
     Dosage: 1 TABLET AT NIGHT, IT IS ONGOING
     Route: 048
     Dates: start: 2011
  7. LASILACTONE [Concomitant]
     Active Substance: FUROSEMIDE\SPIRONOLACTONE
     Dosage: 1 TABLET IN THE MORNING, IT IS ONGOING
     Route: 048
     Dates: start: 2011
  8. PREDNISONE. [Concomitant]
     Active Substance: PREDNISONE
     Dosage: HALF TABLET, MORNINGS AND NIGHTS, IT IS ONGOING
     Route: 065
     Dates: start: 2011
  9. VESSEL DUE [Concomitant]
     Dosage: 1 TABLET, MORNINGS AND NIGHTS, IT IS ONGOING.
     Route: 048
     Dates: start: 201509
  10. ROACTEMRA [Suspect]
     Active Substance: TOCILIZUMAB
     Indication: RHEUMATOID ARTHRITIS
     Route: 042
     Dates: start: 2000, end: 201601

REACTIONS (7)
  - Anxiety [Not Recovered/Not Resolved]
  - Peptic ulcer [Not Recovered/Not Resolved]
  - Intraocular pressure increased [Not Recovered/Not Resolved]
  - Senile dementia [Not Recovered/Not Resolved]
  - Urinary tract infection [Recovered/Resolved]
  - Retinal detachment [Recovered/Resolved]
  - Application site swelling [Recovered/Resolved]

NARRATIVE: CASE EVENT DATE: 2011
